FAERS Safety Report 6735500-2 (Version None)
Quarter: 2010Q2

REPORT INFORMATION
  Report Type: 
  Country: None (occurrence: None)
  Receive Date: 20100521
  Receipt Date: 20100510
  Transmission Date: 20101027
  Serious: Yes (Hospitalization)
  Sender: FDA-Public Use
  Company Number: FR-SANOFI-AVENTIS-2010SA026653

PATIENT
  Age: 81 Year
  Sex: Male

DRUGS (9)
  1. LOVENOX [Suspect]
     Route: 058
     Dates: start: 20100310, end: 20100311
  2. CEFAMANDOLE SODIUM [Suspect]
     Route: 042
     Dates: start: 20100309, end: 20100311
  3. LOXEN [Suspect]
     Route: 042
     Dates: start: 20100309, end: 20100315
  4. ACUPAN [Suspect]
     Dosage: 5 TIMES PER DAY
     Route: 042
     Dates: start: 20100309, end: 20100315
  5. CONTRAMAL [Suspect]
     Route: 048
     Dates: start: 20100308, end: 20100315
  6. LODOZ [Concomitant]
     Route: 048
  7. SERMION [Concomitant]
     Route: 048
  8. ZANIDIP [Concomitant]
     Route: 048
  9. METFORMIN HYDROCHLORIDE [Concomitant]
     Route: 048

REACTIONS (2)
  - RENAL FAILURE ACUTE [None]
  - RENAL FAILURE CHRONIC [None]
